FAERS Safety Report 22163111 (Version 2)
Quarter: 2023Q2

REPORT INFORMATION
  Report Type: Spontaneous
  Country: BR (occurrence: None)
  Receive Date: 20230401
  Receipt Date: 20230515
  Transmission Date: 20230722
  Serious: Yes (Hospitalization)
  Sender: FDA-Public Use
  Company Number: BR-ROCHE-3322129

PATIENT
  Age: 27 Year
  Sex: Female
  Weight: 67 kg

DRUGS (5)
  1. MABTHERA [Suspect]
     Active Substance: RITUXIMAB
     Indication: Product used for unknown indication
     Dosage: 667.5MG DAILY
     Route: 042
     Dates: start: 20230314, end: 20230314
  2. MABTHERA [Suspect]
     Active Substance: RITUXIMAB
     Dosage: 667.5MG DAILY
     Route: 042
     Dates: start: 20230314, end: 20230314
  3. TENOFOVIR [Concomitant]
     Active Substance: TENOFOVIR
     Indication: Acquired immunodeficiency syndrome
     Dates: start: 20230206
  4. EMTRICITABINE [Concomitant]
     Active Substance: EMTRICITABINE
     Indication: Acquired immunodeficiency syndrome
     Dates: start: 20230206
  5. EFAVIRENZ [Concomitant]
     Active Substance: EFAVIRENZ
     Indication: Acquired immunodeficiency syndrome
     Dates: start: 20230206

REACTIONS (6)
  - Infusion related reaction [Recovered/Resolved]
  - Heart rate increased [Recovered/Resolved]
  - Body temperature increased [Recovered/Resolved]
  - Oxygen saturation decreased [Recovered/Resolved]
  - Tremor [Recovered/Resolved]
  - Chills [Recovered/Resolved]

NARRATIVE: CASE EVENT DATE: 20230314
